FAERS Safety Report 18007364 (Version 1)
Quarter: 2020Q3

REPORT INFORMATION
  Report Type: Spontaneous
  Country: US (occurrence: US)
  Receive Date: 20200710
  Receipt Date: 20200710
  Transmission Date: 20201103
  Serious: Yes (Life-Threatening, Other)
  Sender: FDA-Public Use
  Company Number: US-BAYER-2020-132915

PATIENT
  Age: 65 Year
  Sex: Female

DRUGS (5)
  1. FAMOTIDINE. [Suspect]
     Active Substance: FAMOTIDINE
  2. PACLITAXEL. [Suspect]
     Active Substance: PACLITAXEL
  3. CETIRIZINE [Suspect]
     Active Substance: CETIRIZINE HYDROCHLORIDE
  4. MONTELUKAST [Suspect]
     Active Substance: MONTELUKAST SODIUM
  5. ACETYLSALICYLIC ACID [Suspect]
     Active Substance: ASPIRIN
     Indication: PREMEDICATION
     Dosage: UNK

REACTIONS (6)
  - Cardiac arrest [None]
  - Off label use [None]
  - Pneumonia aspiration [None]
  - Seizure like phenomena [None]
  - Pyrexia [None]
  - Product use in unapproved indication [None]
